FAERS Safety Report 4402213-1 (Version None)
Quarter: 2004Q3

REPORT INFORMATION
  Report Type: 
  Country: None (occurrence: None)
  Receive Date: 20040720
  Receipt Date: 20040624
  Transmission Date: 20050211
  Serious: Yes (Disabling)
  Sender: FDA-Public Use
  Company Number: GB-ROCHE-371907

PATIENT
  Sex: Male
  Weight: 60 kg

DRUGS (2)
  1. ROACCUTANE [Suspect]
     Indication: ACNE
     Route: 048
     Dates: start: 20031215, end: 20040415
  2. UNKNOWN DRUG [Concomitant]
     Indication: MUSCLE MASS
     Dosage: DRUG REPORTED AS: A MUSCLE BUILDING PREPARATION NOT THOUGHT TO CONTAIN STERIODS.
     Route: 048

REACTIONS (8)
  - DEPRESSION [None]
  - FEAR [None]
  - IDEAS OF REFERENCE [None]
  - REFUSAL OF TREATMENT BY PATIENT [None]
  - SOCIAL AVOIDANT BEHAVIOUR [None]
  - SOCIAL FEAR [None]
  - SOCIAL PHOBIA [None]
  - SUICIDAL IDEATION [None]
